FAERS Safety Report 9679409 (Version 1)
Quarter: 2013Q4

REPORT INFORMATION
  Report Type: Spontaneous
  Country: US (occurrence: US)
  Receive Date: 20131109
  Receipt Date: 20131109
  Transmission Date: 20140711
  Serious: No
  Sender: FDA-Public Use
  Company Number: US-SANOFI-AVENTIS-2013SA076799

PATIENT
  Age: 68 Year
  Sex: Male

DRUGS (2)
  1. MULTAQ [Suspect]
     Indication: ATRIAL FIBRILLATION
     Dosage: PRODUCT STARTED FROM ABOUT SIX WEEKS AGO.
     Route: 048
  2. ELIQUIS [Concomitant]

REACTIONS (2)
  - Heart rate increased [Recovered/Resolved]
  - Increased upper airway secretion [Recovered/Resolved]
